FAERS Safety Report 4452277-4 (Version None)
Quarter: 2004Q3

REPORT INFORMATION
  Report Type: 
  Country: None (occurrence: None)
  Receive Date: 20040917
  Receipt Date: 20040908
  Transmission Date: 20050211
  Serious: Yes (Life-Threatening, Hospitalization)
  Sender: FDA-Public Use
  Company Number: GB-BRISTOL-MYERS SQUIBB COMPANY-12702437

PATIENT
  Age: 51 Year
  Sex: Male
  Weight: 98 kg

DRUGS (4)
  1. METFORMIN HCL [Suspect]
     Indication: DIABETES MELLITUS NON-INSULIN-DEPENDENT
     Dosage: INITIATED AT 850 MG BID
     Route: 048
     Dates: start: 20040525, end: 20040813
  2. NAPROXEN [Concomitant]
     Indication: CHEST WALL PAIN
     Route: 048
     Dates: start: 20040806, end: 20040820
  3. BUPRENORPHINE HCL [Concomitant]
     Indication: ABDOMINAL PAIN UPPER
     Route: 048
     Dates: start: 20040713
  4. CO-CODAMOL [Concomitant]
     Indication: ABDOMINAL PAIN UPPER
     Route: 048

REACTIONS (1)
  - RENAL FAILURE ACUTE [None]
